FAERS Safety Report 17648249 (Version 2)
Quarter: 2020Q2

REPORT INFORMATION
  Report Type: Report from Study
  Country: US (occurrence: US)
  Receive Date: 20200408
  Receipt Date: 20200527
  Transmission Date: 20200713
  Serious: No
  Sender: FDA-Public Use
  Company Number: NVSC2020US090312

PATIENT
  Sex: Male

DRUGS (1)
  1. COSENTYX [Suspect]
     Active Substance: SECUKINUMAB
     Indication: PRODUCT USED FOR UNKNOWN INDICATION
     Dosage: UNK
     Route: 065

REACTIONS (10)
  - Psoriasis [Unknown]
  - Arthralgia [Unknown]
  - Scab [Unknown]
  - Depression [Unknown]
  - Pain [Unknown]
  - Blister [Unknown]
  - Sunburn [Unknown]
  - Wound haemorrhage [Unknown]
  - Arthritis [Unknown]
  - Back pain [Unknown]
